FAERS Safety Report 7797070-X (Version None)
Quarter: 2011Q4

REPORT INFORMATION
  Report Type: 
  Country: None (occurrence: None)
  Receive Date: 20111005
  Receipt Date: 20110927
  Transmission Date: 20120403
  Serious: Yes (Hospitalization)
  Sender: FDA-Public Use
  Company Number: PL-SANOFI-AVENTIS-2010SA074138

PATIENT
  Age: 74 Year
  Sex: Male
  Weight: 73 kg

DRUGS (9)
  1. DILTIAZEM HCL [Concomitant]
  2. WARFARIN SODIUM [Concomitant]
     Dosage: 175 MG WEEKLY
  3. DRONEDARONE HCL [Suspect]
     Indication: ATRIAL FIBRILLATION
     Route: 048
     Dates: start: 20101201, end: 20101203
  4. POTASSIUM [Concomitant]
  5. IPRATROPIUM BROMIDE [Concomitant]
  6. FUROSEMIDE [Concomitant]
  7. THEOPHYLLINE [Concomitant]
  8. RAMIPRIL [Concomitant]
  9. FORMOTEROL FUMARATE [Concomitant]

REACTIONS (1)
  - HEPATIC ENZYME INCREASED [None]
